FAERS Safety Report 16684440 (Version 1)
Quarter: 2019Q3

REPORT INFORMATION
  Report Type: Spontaneous
  Country: DE (occurrence: DE)
  Receive Date: 20190808
  Receipt Date: 20190808
  Transmission Date: 20191004
  Serious: Yes (Hospitalization, Other)
  Sender: FDA-Public Use
  Company Number: PHHY2019DE181151

PATIENT
  Sex: Female

DRUGS (1)
  1. COSENTYX [Suspect]
     Active Substance: SECUKINUMAB
     Indication: PRODUCT USED FOR UNKNOWN INDICATION
     Dosage: 300 MG, QMO
     Route: 065
     Dates: start: 2016, end: 201905

REACTIONS (4)
  - Pyrexia [Unknown]
  - Renal impairment [Unknown]
  - Cystitis noninfective [Unknown]
  - Sepsis [Unknown]

NARRATIVE: CASE EVENT DATE: 2019
